FAERS Safety Report 16388526 (Version 1)
Quarter: 2019Q2

REPORT INFORMATION
  Report Type: Spontaneous
  Country: US (occurrence: US)
  Receive Date: 20190429
  Receipt Date: 20190429
  Transmission Date: 20190711
  Serious: No
  Sender: FDA-Public Use
  Company Number: None

PATIENT
  Age: 63 Year
  Sex: Male

DRUGS (1)
  1. ATAZANAVIR SULFATE ++ 300MG CIPLA USA [Suspect]
     Active Substance: ATAZANAVIR SULFATE
     Indication: HIV INFECTION
     Route: 048
     Dates: start: 20170201

REACTIONS (6)
  - Blood pressure decreased [None]
  - Fatigue [None]
  - Dizziness [None]
  - Heart rate decreased [None]
  - Product substitution issue [None]
  - Memory impairment [None]

NARRATIVE: CASE EVENT DATE: 201904
